FAERS Safety Report 23125325 (Version 1)
Quarter: 2023Q4

REPORT INFORMATION
  Report Type: Spontaneous
  Country: QA (occurrence: QA)
  Receive Date: 20231030
  Receipt Date: 20231030
  Transmission Date: 20240110
  Serious: Yes (Death, Hospitalization, Other)
  Sender: FDA-Public Use
  Company Number: QA-AMNEAL PHARMACEUTICALS-2023-AMRX-03766

PATIENT
  Age: 68 Year
  Sex: Male

DRUGS (2)
  1. LINEZOLID [Suspect]
     Active Substance: LINEZOLID
     Indication: Osteomyelitis
     Dosage: 600 MG FOR 6 WEEKS
     Route: 048
  2. CEFEPIME [Concomitant]
     Active Substance: CEFEPIME HYDROCHLORIDE
     Indication: Product used for unknown indication
     Dosage: 2 G EVERY SIX HOURS FOR 2 WEEKS
     Route: 042

REACTIONS (6)
  - Septic shock [Fatal]
  - Pancreatitis [Recovering/Resolving]
  - Lactic acidosis [Recovering/Resolving]
  - Thrombocytopenia [Recovering/Resolving]
  - Hypoglycaemia [Recovering/Resolving]
  - Nosocomial infection [Unknown]
